FAERS Safety Report 21315915 (Version 1)
Quarter: 2022Q3

REPORT INFORMATION
  Report Type: Spontaneous
  Country: US (occurrence: US)
  Receive Date: 20220910
  Receipt Date: 20220910
  Transmission Date: 20221027
  Serious: Yes (Hospitalization, Other)
  Sender: FDA-Public Use
  Company Number: US-CADILA HEALTHCARE LIMITED-US-ZYDUS-082323

PATIENT

DRUGS (2)
  1. PROPRANOLOL [Suspect]
     Active Substance: PROPRANOLOL HYDROCHLORIDE
     Indication: Suicide attempt
     Dosage: 30 DOSAGE FORM
     Route: 048
  2. LITHIUM [Suspect]
     Active Substance: LITHIUM
     Indication: Suicide attempt
     Dosage: 30 DOSAGE FORM
     Route: 048

REACTIONS (10)
  - Electrocardiogram QT prolonged [None]
  - Hypoaesthesia [Recovered/Resolved]
  - Abdominal pain [Recovered/Resolved]
  - Bradycardia [Unknown]
  - Lethargy [Unknown]
  - Nausea [Recovered/Resolved]
  - Vomiting [Recovered/Resolved]
  - Diarrhoea [Recovered/Resolved]
  - Suicide attempt [Unknown]
  - Overdose [Unknown]
